FAERS Safety Report 7511912-4 (Version None)
Quarter: 2011Q2

REPORT INFORMATION
  Report Type: 
  Country: None (occurrence: None)
  Receive Date: 20110531
  Receipt Date: 20110526
  Transmission Date: 20111010
  Serious: Yes (Hospitalization)
  Sender: FDA-Public Use
  Company Number: AU-PFIZER INC-2011114511

PATIENT
  Age: 81 Year
  Sex: Female
  Weight: 40 kg

DRUGS (8)
  1. LEVOTHYROXINE SODIUM [Concomitant]
     Dosage: UNK
  2. LYRICA [Suspect]
     Indication: POST HERPETIC NEURALGIA
     Dosage: 75 MG, 2X/DAY
     Route: 048
  3. PROTHIADEN [Concomitant]
     Dosage: UNK
  4. QUININE [Concomitant]
     Dosage: UNK
  5. SEREPAX [Concomitant]
     Dosage: UNK
  6. MINITEC [Concomitant]
     Dosage: UNK
  7. CLONAZEPAM [Concomitant]
     Dosage: UNK
  8. VALACICLOVIR [Concomitant]
     Dosage: 1000 MG, 3X/DAY

REACTIONS (1)
  - MOVEMENT DISORDER [None]
